FAERS Safety Report 24196064 (Version 2)
Quarter: 2024Q3

REPORT INFORMATION
  Report Type: Report from Study
  Country: BR (occurrence: BR)
  Receive Date: 20240809
  Receipt Date: 20240814
  Transmission Date: 20241017
  Serious: No
  Sender: SANDOZ
  Company Number: BR-002147023-NVSC2023BR099981

PATIENT
  Age: 13 Year
  Sex: Male
  Weight: 56 kg

DRUGS (2)
  1. OMNITROPE [Suspect]
     Active Substance: SOMATROPIN
     Indication: Product used for unknown indication
     Dosage: UNK (1.0 AT NIGHT)
     Route: 058
  2. OMNITROPE [Suspect]
     Active Substance: SOMATROPIN
     Dosage: 1,7 MG, DAILY
     Route: 065

REACTIONS (2)
  - Product storage error [Unknown]
  - Product temperature excursion issue [Unknown]

NARRATIVE: CASE EVENT DATE: 20230421
